FAERS Safety Report 12819104 (Version 1)
Quarter: 2016Q4

REPORT INFORMATION
  Report Type: Spontaneous
  Country: US (occurrence: US)
  Receive Date: 20161006
  Receipt Date: 20161006
  Transmission Date: 20170207
  Serious: No
  Sender: FDA-Public Use
  Company Number: US-HORIZON-VIM-0212-2016

PATIENT
  Age: 55 Year
  Sex: Female

DRUGS (2)
  1. VIMOVO [Suspect]
     Active Substance: ESOMEPRAZOLE MAGNESIUM\NAPROXEN
     Indication: ARTHRITIS
     Dosage: ONCE A DAY AT BEDTIME
     Dates: start: 2011
  2. NAPROSYN [Concomitant]
     Active Substance: NAPROXEN

REACTIONS (3)
  - Intentional product misuse [Unknown]
  - Therapeutic response unexpected [Unknown]
  - Off label use [Unknown]
